FAERS Safety Report 9736818 (Version 1)
Quarter: 2013Q4

REPORT INFORMATION
  Report Type: Spontaneous
  Country: US (occurrence: US)
  Receive Date: 20131206
  Receipt Date: 20131206
  Transmission Date: 20140711
  Serious: No
  Sender: FDA-Public Use
  Company Number: US-BIOGENIDEC-2013BI097941

PATIENT
  Age: 45 Year
  Sex: Female

DRUGS (10)
  1. TECFIDERA [Suspect]
     Indication: MULTIPLE SCLEROSIS
     Route: 048
     Dates: start: 201309
  2. ZOLOFT [Concomitant]
  3. SINGULAIR [Concomitant]
  4. BUPROPION [Concomitant]
  5. ADVAIR [Concomitant]
  6. TRAZODONE [Concomitant]
  7. MELATONIN [Concomitant]
  8. VITAMIN B12 [Concomitant]
  9. BENADRYL [Concomitant]
  10. SYNTHROID [Concomitant]

REACTIONS (1)
  - Flushing [Unknown]
